FAERS Safety Report 9571495 (Version 1)
Quarter: 2013Q4

REPORT INFORMATION
  Report Type: Spontaneous
  Country: US (occurrence: US)
  Receive Date: 20131001
  Receipt Date: 20131001
  Transmission Date: 20140711
  Serious: No
  Sender: FDA-Public Use
  Company Number: US-PFIZER INC-2013279680

PATIENT
  Age: 71 Year
  Sex: Female
  Weight: 49.43 kg

DRUGS (2)
  1. NEURONTIN [Suspect]
     Indication: THERMAL BURN
     Dosage: 600 MG, 3X/DAY
     Dates: start: 201303, end: 20130926
  2. NEURONTIN [Suspect]
     Indication: NERVE INJURY

REACTIONS (1)
  - Drug ineffective [Unknown]
